FAERS Safety Report 11839394 (Version 1)
Quarter: 2015Q4

REPORT INFORMATION
  Report Type: Spontaneous
  Country: US (occurrence: US)
  Receive Date: 20151216
  Receipt Date: 20151216
  Transmission Date: 20160305
  Serious: No
  Sender: FDA-Public Use
  Company Number: US-009507513-1512USA007245

PATIENT

DRUGS (1)
  1. NEXPLANON [Suspect]
     Active Substance: ETONOGESTREL
     Indication: CONTRACEPTION
     Dosage: UNK
     Route: 059
     Dates: start: 20151001, end: 2015

REACTIONS (5)
  - Device dislocation [Recovered/Resolved]
  - Medical device site scab [Unknown]
  - Implant site abscess [Unknown]
  - Implant site infection [Unknown]
  - Implant site irritation [Unknown]

NARRATIVE: CASE EVENT DATE: 2015
